FAERS Safety Report 18009152 (Version 1)
Quarter: 2020Q3

REPORT INFORMATION
  Report Type: Spontaneous
  Country: US (occurrence: US)
  Receive Date: 20200710
  Receipt Date: 20200710
  Transmission Date: 20201103
  Serious: Yes (Hospitalization, Other)
  Sender: FDA-Public Use
  Company Number: US-SAOL THERAPEUTICS-2019SAO00393

PATIENT
  Age: 27 Year
  Sex: Male
  Weight: 64.5 kg

DRUGS (7)
  1. BACLOFEN. [Concomitant]
     Active Substance: BACLOFEN
     Dosage: 10 MG, 4X/DAY
     Route: 048
     Dates: start: 20190920
  2. GABLOFEN [Suspect]
     Active Substance: BACLOFEN
     Indication: CEREBRAL PALSY
  3. LIORESAL [Suspect]
     Active Substance: BACLOFEN
     Dosage: 849.1 ?G, \DAY
     Route: 037
  4. LIORESAL [Suspect]
     Active Substance: BACLOFEN
     Dosage: 627.4 ?G, \DAY
     Route: 037
  5. GABLOFEN [Suspect]
     Active Substance: BACLOFEN
     Indication: MUSCLE SPASTICITY
     Dosage: 759.7 ?G, \DAY
  6. LIORESAL [Suspect]
     Active Substance: BACLOFEN
     Dosage: 759.7 ?G/DAY
     Route: 037
  7. LIORESAL [Suspect]
     Active Substance: BACLOFEN
     Dosage: 760 ?G, \DAY
     Route: 037

REACTIONS (12)
  - Drug withdrawal syndrome [Recovered/Resolved]
  - Therapy non-responder [Not Recovered/Not Resolved]
  - Apathy [Recovered/Resolved]
  - Eschar [Recovered/Resolved]
  - Fatigue [Not Recovered/Not Resolved]
  - Constipation [Not Recovered/Not Resolved]
  - Device infusion issue [Recovered/Resolved]
  - Device kink [Recovered/Resolved]
  - Unevaluable event [Not Recovered/Not Resolved]
  - Catheter site fibrosis [Not Recovered/Not Resolved]
  - Seroma [Not Recovered/Not Resolved]
  - Anxiety [Not Recovered/Not Resolved]

NARRATIVE: CASE EVENT DATE: 2019
